FAERS Safety Report 20633540 (Version 3)
Quarter: 2022Q3

REPORT INFORMATION
  Report Type: Report from Study
  Country: US (occurrence: US)
  Receive Date: 20220324
  Receipt Date: 20220713
  Transmission Date: 20221026
  Serious: Yes (Death, Other)
  Sender: FDA-Public Use
  Company Number: US-ABBVIE-22K-163-4330524-00

PATIENT
  Age: 74 Year
  Sex: Male

DRUGS (7)
  1. IMBRUVICA [Suspect]
     Active Substance: IBRUTINIB
     Indication: Chronic lymphocytic leukaemia
     Route: 048
     Dates: start: 20140527, end: 2014
  2. IMBRUVICA [Suspect]
     Active Substance: IBRUTINIB
     Route: 048
     Dates: start: 20140604, end: 20220316
  3. MAXIPIME [Concomitant]
     Active Substance: CEFEPIME HYDROCHLORIDE
     Indication: Product used for unknown indication
  4. LOVENOX [Concomitant]
     Active Substance: ENOXAPARIN SODIUM
     Indication: Product used for unknown indication
  5. VANCOCIN [Concomitant]
     Active Substance: VANCOMYCIN HYDROCHLORIDE
     Indication: Product used for unknown indication
  6. CEFEPIME [Concomitant]
     Active Substance: CEFEPIME HYDROCHLORIDE
     Indication: Product used for unknown indication
  7. FERAHEME [Concomitant]
     Active Substance: FERUMOXYTOL NON-STOICHIOMETRIC MAGNETITE
     Indication: Product used for unknown indication

REACTIONS (26)
  - Chronic lymphocytic leukaemia [Fatal]
  - Febrile neutropenia [Unknown]
  - Sepsis [Unknown]
  - B-cell small lymphocytic lymphoma [Unknown]
  - Septic shock [Unknown]
  - Hypotension [Unknown]
  - Therapeutic product effect decreased [Unknown]
  - Cellulitis [Unknown]
  - Chills [Unknown]
  - Pyrexia [Recovered/Resolved]
  - Asthenia [Unknown]
  - Decreased appetite [Unknown]
  - Weight decreased [Unknown]
  - Wheezing [Unknown]
  - Dyspnoea exertional [Unknown]
  - Cough [Unknown]
  - Increased tendency to bruise [Unknown]
  - Iron deficiency anaemia [Unknown]
  - Lymphoedema [Unknown]
  - Onychomycosis [Unknown]
  - Hypogammaglobulinaemia [Unknown]
  - Anaemia macrocytic [Unknown]
  - Rhinotracheitis [Unknown]
  - Respiratory tract congestion [Unknown]
  - Gastritis [Unknown]
  - Disease progression [Unknown]

NARRATIVE: CASE EVENT DATE: 20161121
